FAERS Safety Report 21272263 (Version 2)
Quarter: 2022Q3

REPORT INFORMATION
  Report Type: Spontaneous
  Country: GB (occurrence: GB)
  Receive Date: 20220830
  Receipt Date: 20220906
  Transmission Date: 20221027
  Serious: Yes (Hospitalization, Other)
  Sender: FDA-Public Use
  Company Number: GB-ASPAR-ASP-21-00726

PATIENT
  Sex: Female

DRUGS (15)
  1. SITAGLIPTIN PHOSPHATE [Suspect]
     Active Substance: SITAGLIPTIN PHOSPHATE
     Dosage: 2 MORNING AND 1 AT NIGHT
     Route: 065
     Dates: start: 20220726, end: 20220727
  2. SITAGLIPTIN PHOSPHATE [Suspect]
     Active Substance: SITAGLIPTIN PHOSPHATE
     Dosage: 3 AT NIGHT
     Route: 065
  3. CARBIDOPA\LEVODOPA [Suspect]
     Active Substance: CARBIDOPA\LEVODOPA
     Dosage: CO-CARELDOPA 12.5/50MG - 2 IN MORNING
     Route: 065
     Dates: start: 20220726, end: 20220727
  4. CARBIDOPA\LEVODOPA [Suspect]
     Active Substance: CARBIDOPA\LEVODOPA
     Dosage: CO-CARELDOPA 25MG/100MG - ONE AT NIGHT
     Route: 065
     Dates: start: 20220726, end: 20220727
  5. ATORVASTATIN [Suspect]
     Active Substance: ATORVASTATIN
     Indication: Product used for unknown indication
     Dosage: 1 AT NIGHT
     Route: 065
     Dates: start: 20220726, end: 20220727
  6. CHOLECALCIFEROL [Suspect]
     Active Substance: CHOLECALCIFEROL
     Indication: Product used for unknown indication
     Dosage: ONE IN MORNING
     Route: 065
     Dates: start: 20220726, end: 20220727
  7. GLICLAZIDE [Suspect]
     Active Substance: GLICLAZIDE
     Indication: Product used for unknown indication
     Dosage: GLICLAZIDE 60 MR - ONE MORNING AND NIGHT
     Route: 065
     Dates: start: 20220726, end: 20220727
  8. LEVOTHYROXINE [Suspect]
     Active Substance: LEVOTHYROXINE
     Indication: Product used for unknown indication
     Dosage: ONE DAILY
     Route: 065
     Dates: start: 20220726, end: 20220727
  9. LEVOTHYROXINE [Suspect]
     Active Substance: LEVOTHYROXINE
     Dosage: ONE DAILY
     Route: 065
     Dates: start: 20220726, end: 20220727
  10. METFORMIN [Suspect]
     Active Substance: METFORMIN HYDROCHLORIDE
     Indication: Product used for unknown indication
     Dosage: ONE DAILY
     Route: 065
     Dates: start: 20220726, end: 20220727
  11. HERBALS [Suspect]
     Active Substance: HERBALS
     Indication: Product used for unknown indication
     Dosage: 2 AT NIGHT
     Route: 065
     Dates: start: 20220726, end: 20220727
  12. AMITRIPTYLINE [Concomitant]
     Active Substance: AMITRIPTYLINE
     Indication: Product used for unknown indication
     Dosage: 3 AT NIGHT
     Route: 065
  13. AMITRIPTYLINE [Concomitant]
     Active Substance: AMITRIPTYLINE
     Route: 065
  14. APIXABAN [Concomitant]
     Active Substance: APIXABAN
     Indication: Product used for unknown indication
     Dosage: 2.5MG - ONE TWICE DAILY
     Route: 065
  15. ACETAMINOPHEN [Concomitant]
     Active Substance: ACETAMINOPHEN
     Indication: Product used for unknown indication
     Dosage: 2 X 500MG THREE TIMES A DAY
     Route: 065

REACTIONS (7)
  - Circulatory collapse [Recovered/Resolved]
  - Product dispensing error [Recovered/Resolved]
  - Medication error [Unknown]
  - Loss of consciousness [Recovered/Resolved]
  - Wrong product administered [Unknown]
  - Wrong patient received product [Unknown]
  - Loss of consciousness [Unknown]

NARRATIVE: CASE EVENT DATE: 20220726
